FAERS Safety Report 8269394-3 (Version None)
Quarter: 2012Q2

REPORT INFORMATION
  Report Type: 
  Country: None (occurrence: None)
  Receive Date: 20120409
  Receipt Date: 20120110
  Transmission Date: 20120825
  Serious: Yes (Hospitalization)
  Sender: FDA-Public Use
  Company Number: US-ASTRAZENECA-2012SE02066

PATIENT
  Age: 55 Year
  Sex: Male
  Weight: 72.6 kg

DRUGS (6)
  1. BRILINTA [Suspect]
     Indication: ACUTE CORONARY SYNDROME
     Route: 048
  2. BRILINTA [Suspect]
     Indication: ACUTE MYOCARDIAL INFARCTION
     Route: 048
  3. ASPIRIN [Suspect]
  4. BRILINTA [Suspect]
     Route: 048
  5. BRILINTA [Suspect]
     Route: 048
  6. ASPIRIN [Suspect]

REACTIONS (1)
  - DYSPNOEA [None]
